FAERS Safety Report 16745925 (Version 1)
Quarter: 2019Q3

REPORT INFORMATION
  Report Type: Report from Study
  Country: US (occurrence: US)
  Receive Date: 20190827
  Receipt Date: 20190827
  Transmission Date: 20191005
  Serious: Yes (Hospitalization, Other)
  Sender: FDA-Public Use
  Company Number: US-EMD SERONO-9099426

PATIENT
  Sex: Male
  Weight: 69 kg

DRUGS (2)
  1. SEROSTIM [Suspect]
     Active Substance: SOMATROPIN
     Indication: HIV WASTING SYNDROME
  2. SEROSTIM [Suspect]
     Active Substance: SOMATROPIN
     Indication: CACHEXIA
     Dosage: 7 VIAL PACK
     Route: 058
     Dates: start: 20190116

REACTIONS (2)
  - Spinal fusion surgery [Recovering/Resolving]
  - Myelopathy [Not Recovered/Not Resolved]

NARRATIVE: CASE EVENT DATE: 2019
